FAERS Safety Report 6508798-3 (Version None)
Quarter: 2009Q4

REPORT INFORMATION
  Report Type: 
  Country: None (occurrence: None)
  Receive Date: 20091221
  Receipt Date: 20090821
  Transmission Date: 20100525
  Serious: No
  Sender: FDA-Public Use
  Company Number: US-ASTRAZENECA-2009SE09450

PATIENT

DRUGS (4)
  1. CRESTOR [Suspect]
     Route: 048
  2. CRESTOR [Suspect]
     Route: 048
  3. SYNTHROID [Concomitant]
  4. AVAPRO (LOW DOSE) [Concomitant]

REACTIONS (1)
  - PARAESTHESIA [None]
